FAERS Safety Report 23428635 (Version 7)
Quarter: 2024Q2

REPORT INFORMATION
  Report Type: Report from Study
  Country: US (occurrence: US)
  Receive Date: 20240122
  Receipt Date: 20240517
  Transmission Date: 20240716
  Serious: Yes (Other)
  Sender: FDA-Public Use
  Company Number: US-HORIZON THERAPEUTICS-HZN-2024-000543

PATIENT

DRUGS (4)
  1. KRYSTEXXA [Suspect]
     Active Substance: PEGLOTICASE
     Indication: Product used for unknown indication
     Dosage: FIRST INFUSION
     Route: 042
     Dates: start: 20231227
  2. KRYSTEXXA [Suspect]
     Active Substance: PEGLOTICASE
     Dosage: FEB INFUSION
     Route: 042
     Dates: start: 20240222
  3. KRYSTEXXA [Suspect]
     Active Substance: PEGLOTICASE
     Dosage: MARCH 21 INFUSION
     Route: 042
     Dates: start: 20240321
  4. AZATHIOPRINE [Suspect]
     Active Substance: AZATHIOPRINE
     Indication: Product used for unknown indication
     Dosage: FIRST DOSE
     Route: 065
     Dates: end: 20240223

REACTIONS (8)
  - Neuropathy peripheral [Recovered/Resolved]
  - Back pain [Recovered/Resolved]
  - Blood pressure increased [Recovered/Resolved]
  - Incision site pain [Recovered/Resolved]
  - Blood uric acid increased [Unknown]
  - Drug ineffective [Unknown]
  - Off label use [Unknown]
  - Off label use [Recovered/Resolved]

NARRATIVE: CASE EVENT DATE: 20240101
